FAERS Safety Report 5984208-X (Version None)
Quarter: 2008Q4

REPORT INFORMATION
  Report Type: 
  Country: None (occurrence: None)
  Receive Date: 20081208
  Receipt Date: 20080915
  Transmission Date: 20090506
  Serious: Yes (Other)
  Sender: FDA-Public Use
  Company Number: US-AMGEN-QUU305813

PATIENT
  Sex: Female
  Weight: 79.5 kg

DRUGS (6)
  1. ENBREL [Suspect]
     Indication: PSORIASIS
     Route: 058
     Dates: start: 20070201, end: 20080828
  2. ASPIRIN [Concomitant]
  3. TOPAMAX [Concomitant]
     Dates: start: 20030101
  4. BLACK COHOSH [Concomitant]
  5. PRILOSEC [Concomitant]
  6. MULTI-VITAMINS [Concomitant]

REACTIONS (1)
  - CUTANEOUS LUPUS ERYTHEMATOSUS [None]
